FAERS Safety Report 7864788-X (Version None)
Quarter: 2011Q4

REPORT INFORMATION
  Report Type: 
  Country: None (occurrence: None)
  Receive Date: 20111028
  Receipt Date: 20101229
  Transmission Date: 20120403
  Serious: No
  Sender: FDA-Public Use
  Company Number: US-GLAXOSMITHKLINE-A0779212A

PATIENT
  Age: 46 Year
  Sex: Female

DRUGS (5)
  1. POTASSIUM CITRATE [Concomitant]
  2. ADVAIR DISKUS 100/50 [Suspect]
     Indication: ASTHMA
     Dosage: 1PUFF PER DAY
     Route: 055
     Dates: start: 20090330
  3. SINGULAIR [Concomitant]
  4. ENALAPRIL MALEATE [Concomitant]
  5. TOPAMAX [Concomitant]

REACTIONS (5)
  - HYPERSENSITIVITY [None]
  - PRURITUS [None]
  - WHEEZING [None]
  - DYSPNOEA [None]
  - PRODUCT QUALITY ISSUE [None]
